FAERS Safety Report 24891598 (Version 4)
Quarter: 2025Q2

REPORT INFORMATION
  Report Type: Spontaneous
  Country: CZ (occurrence: CZ)
  Receive Date: 20250127
  Receipt Date: 20250408
  Transmission Date: 20250717
  Serious: Yes (Other)
  Sender: NOVARTIS
  Company Number: CZ-002147023-NVSC2025CZ011191

PATIENT
  Age: 23 Month
  Sex: Female

DRUGS (2)
  1. ZOLGENSMA [Suspect]
     Active Substance: ONASEMNOGENE ABEPARVOVEC-XIOI
     Indication: Spinal muscular atrophy
     Route: 042
     Dates: start: 20230103, end: 20230103
  2. PREDNISONE [Concomitant]
     Active Substance: PREDNISONE
     Indication: Product used for unknown indication
     Route: 065
     Dates: end: 20230424

REACTIONS (6)
  - Pyrexia [Recovered/Resolved]
  - Haematochezia [Recovered/Resolved]
  - Motor developmental delay [Unknown]
  - Muscular weakness [Unknown]
  - Gait disturbance [Unknown]
  - Drug ineffective [Unknown]
